FAERS Safety Report 8963822 (Version 1)
Quarter: 2012Q4

REPORT INFORMATION
  Report Type: Report from Study
  Country: US (occurrence: US)
  Receive Date: 20121214
  Receipt Date: 20121214
  Transmission Date: 20130627
  Serious: Yes (Hospitalization)
  Sender: FDA-Public Use
  Company Number: US-009507513-1212USA004451

PATIENT
  Age: 52 Year
  Sex: Female
  Weight: 81.17 kg

DRUGS (18)
  1. TEMODAR [Suspect]
     Indication: GLIOBLASTOMA MULTIFORME
     Dosage: 150 mg
     Route: 048
     Dates: start: 20090520, end: 20090704
  2. TEMODAR [Suspect]
     Dosage: 150 mg, UNK
     Dates: end: 20090722
  3. BEVACIZUMAB [Suspect]
     Indication: GLIOBLASTOMA MULTIFORME
     Dosage: 780 mg
     Route: 042
     Dates: start: 20090520, end: 20090722
  4. BEVACIZUMAB [Suspect]
     Dosage: UNK
  5. BEVACIZUMAB [Suspect]
     Dosage: UNK
  6. EVEROLIMUS [Suspect]
     Indication: GLIOBLASTOMA MULTIFORME
     Dosage: 10 mg, UNK
     Route: 048
     Dates: start: 20090827
  7. KEPPRA [Concomitant]
     Indication: CONVULSION
     Dosage: 1500 mg, bid
     Route: 048
     Dates: start: 20090409, end: 20090724
  8. LORAZEPAM [Concomitant]
     Dosage: 0.5 mg, UNK
     Dates: start: 20090515
  9. PEPCID [Concomitant]
     Dosage: UNK
     Dates: start: 20090409
  10. DECADRON (DEXAMETHASONE) [Concomitant]
     Dosage: UNK
     Dates: start: 20090409
  11. DILANTIN [Concomitant]
  12. ZOLPIDEM TARTRATE [Concomitant]
  13. PROCHLORPERAZINE [Concomitant]
     Indication: NAUSEA
     Dosage: 10 mg, prn
     Dates: start: 20090515
  14. DIVALPROEX SODIUM [Concomitant]
     Dosage: 250 mg, 3 in 1 dose
     Dates: start: 20090812
  15. DEPAKOTE [Concomitant]
     Dosage: UNK
     Route: 048
     Dates: start: 20090812
  16. METOPROLOL [Concomitant]
     Dosage: 75 mg, bid
     Dates: start: 20090812
  17. CITALOPRAM [Concomitant]
     Dosage: UNK
     Route: 048
     Dates: start: 20090409, end: 20090411
  18. LEVETIRACETAM [Concomitant]
     Dosage: 1500 mg, qd
     Route: 048
     Dates: start: 20090412

REACTIONS (5)
  - Convulsion [Recovered/Resolved]
  - Syncope [Recovered/Resolved]
  - Pyrexia [Unknown]
  - Pain [Unknown]
  - Deep vein thrombosis [Unknown]
